FAERS Safety Report 16480225 (Version 1)
Quarter: 2019Q2

REPORT INFORMATION
  Report Type: Spontaneous
  Country: US (occurrence: US)
  Receive Date: 20190626
  Receipt Date: 20190626
  Transmission Date: 20190711
  Serious: Yes (Other)
  Sender: FDA-Public Use
  Company Number: US-PFIZER INC-2019264549

PATIENT
  Age: 77 Year
  Sex: Female

DRUGS (3)
  1. DOXYCYCLINE HYCLATE. [Suspect]
     Active Substance: DOXYCYCLINE HYCLATE
     Indication: ANTIBIOTIC THERAPY
     Dosage: 100 MG, 2X/DAY(FOR 10 DAYS)
  2. DOXYCYCLINE HYCLATE. [Suspect]
     Active Substance: DOXYCYCLINE HYCLATE
     Indication: NASOPHARYNGITIS
  3. IBRANCE [Suspect]
     Active Substance: PALBOCICLIB
     Indication: BREAST CANCER METASTATIC
     Dosage: 125 MG, CYCLIC (DAILY FOR 21 DAYS, THEN OFF FOR 7)
     Route: 048
     Dates: end: 20190611

REACTIONS (17)
  - Fall [Recovered/Resolved with Sequelae]
  - Immune system disorder [Unknown]
  - Wound dehiscence [Unknown]
  - White blood cell count decreased [Unknown]
  - Dehydration [Unknown]
  - Feeding disorder [Recovered/Resolved]
  - Wound haemorrhage [Unknown]
  - Asthenia [Recovering/Resolving]
  - Gastrooesophageal reflux disease [Recovered/Resolved]
  - Abdominal discomfort [Recovered/Resolved]
  - Decreased appetite [Recovered/Resolved]
  - Red blood cell count decreased [Unknown]
  - Nasopharyngitis [Recovered/Resolved]
  - Gait disturbance [Unknown]
  - Oesophageal pain [Recovered/Resolved]
  - Head injury [Unknown]
  - Malaise [Unknown]

NARRATIVE: CASE EVENT DATE: 201905
